FAERS Safety Report 25914106 (Version 1)
Quarter: 2025Q4

REPORT INFORMATION
  Report Type: Spontaneous
  Country: CN (occurrence: CN)
  Receive Date: 20251013
  Receipt Date: 20251013
  Transmission Date: 20260118
  Serious: Yes (Life-Threatening, Hospitalization)
  Sender: PFIZER
  Company Number: CN-PFIZER INC-PV202500120384

PATIENT
  Age: 86 Year
  Sex: Female

DRUGS (3)
  1. TYGACIL [Suspect]
     Active Substance: TIGECYCLINE
     Indication: Decubitus ulcer
     Dosage: UNK
     Dates: start: 20250902
  2. TYGACIL [Suspect]
     Active Substance: TIGECYCLINE
     Dosage: 0.2 G, 1X/DAY
     Route: 041
     Dates: start: 20250922, end: 20250922
  3. TYGACIL [Suspect]
     Active Substance: TIGECYCLINE
     Dosage: UNK
     Dates: end: 20250930

REACTIONS (5)
  - Anaemia [Recovering/Resolving]
  - White blood cell count decreased [Recovering/Resolving]
  - Coagulation time prolonged [Recovering/Resolving]
  - Coagulopathy [Recovering/Resolving]
  - Off label use [Unknown]

NARRATIVE: CASE EVENT DATE: 20250922
